FAERS Safety Report 16129945 (Version 1)
Quarter: 2019Q1

REPORT INFORMATION
  Report Type: Spontaneous
  Country: BG (occurrence: BG)
  Receive Date: 20190328
  Receipt Date: 20190328
  Transmission Date: 20190418
  Serious: Yes (Other)
  Sender: FDA-Public Use
  Company Number: BG-ASTRAZENECA-2019SE46705

PATIENT
  Age: 66 Year
  Sex: Female

DRUGS (5)
  1. FASLODEX [Suspect]
     Active Substance: FULVESTRANT
     Indication: BREAST CANCER METASTATIC
     Dosage: 250 MG
     Route: 030
  2. AFINITOR [Concomitant]
     Active Substance: EVEROLIMUS
     Dosage: 10 MG
  3. TAMOXIFEN [Suspect]
     Active Substance: TAMOXIFEN
     Indication: INVASIVE DUCTAL BREAST CARCINOMA
     Route: 048
     Dates: end: 200803
  4. EXEMESTANE. [Concomitant]
     Active Substance: EXEMESTANE
     Dosage: 25 MG
  5. ARIMIDEX [Suspect]
     Active Substance: ANASTROZOLE
     Dosage: 1 MG
     Route: 048

REACTIONS (5)
  - Pain in extremity [Unknown]
  - Metastases to lymph nodes [Unknown]
  - Arthralgia [Unknown]
  - Metrorrhagia [Unknown]
  - Myalgia [Unknown]

NARRATIVE: CASE EVENT DATE: 200803
